FAERS Safety Report 8381809-9 (Version None)
Quarter: 2012Q2

REPORT INFORMATION
  Report Type: 
  Country: None (occurrence: None)
  Receive Date: 20120522
  Receipt Date: 20120522
  Transmission Date: 20120825
  Serious: No
  Sender: FDA-Public Use
  Company Number: None

PATIENT
  Age: 52 Year
  Sex: Female
  Weight: 89.8122 kg

DRUGS (2)
  1. LEVAQUIN [Suspect]
     Indication: ABSCESS
     Dosage: 20 ML 1 TIME DAILY
     Dates: start: 20120319, end: 20120325
  2. LEVAQUIN [Suspect]
     Indication: PYREXIA
     Dosage: 20 ML 1 TIME DAILY
     Dates: start: 20120319, end: 20120325

REACTIONS (8)
  - GAIT DISTURBANCE [None]
  - ORAL MUCOSAL BLISTERING [None]
  - ARTHRITIS [None]
  - INFLAMMATION [None]
  - DEPRESSION [None]
  - PAIN IN EXTREMITY [None]
  - LETHARGY [None]
  - MUSCLE TWITCHING [None]
